FAERS Safety Report 9959092 (Version 1)
Quarter: 2014Q1

REPORT INFORMATION
  Report Type: Spontaneous
  Country: US (occurrence: None)
  Receive Date: 20140227
  Receipt Date: 20140227
  Transmission Date: 20141002
  Serious: Yes (Hospitalization)
  Sender: FDA-Public Use
  Company Number: B0972040A

PATIENT
  Age: 17 Year
  Sex: Female

DRUGS (5)
  1. OLANZAPINE (GENERIC) [Suspect]
     Indication: PRODUCT USED FOR UNKNOWN INDICATION
     Dosage: UNK
  2. LAMOTRIGINE (FORMULATION UNKNOWN) (GENERIC) (LAMOTRIGINE) [Suspect]
     Indication: PRODUCT USED FOR UNKNOWN INDICATION
     Dosage: UNK
  3. SERTRALINE (FORMULATION UNKNOWN) (GENERIC) (SERTRALINE) [Suspect]
     Indication: PRODUCT USED FOR UNKNOWN INDICATION
     Dosage: UNK
  4. ZIPRASIDONE HCL [Suspect]
     Indication: PRODUCT USED FOR UNKNOWN INDICATION
     Dosage: UNK
  5. LANSOPRAZOLE [Concomitant]

REACTIONS (5)
  - Weight increased [None]
  - Vaginal haemorrhage [None]
  - Breast enlargement [None]
  - Breast discharge [None]
  - Hyperprolactinaemia [None]
